FAERS Safety Report 18221119 (Version 1)
Quarter: 2020Q3

REPORT INFORMATION
  Report Type: Spontaneous
  Country: DE (occurrence: DE)
  Receive Date: 20200902
  Receipt Date: 20200902
  Transmission Date: 20201103
  Serious: Yes (Hospitalization, Other)
  Sender: FDA-Public Use
  Company Number: DE-AUROBINDO-AUR-APL-2020-045619

PATIENT
  Age: 62 Year
  Sex: Male

DRUGS (4)
  1. PHENPROCOUMON [Concomitant]
     Active Substance: PHENPROCOUMON
     Indication: ATRIAL FIBRILLATION
     Dosage: UNK
     Route: 065
  2. FLUOROURACIL. [Suspect]
     Active Substance: FLUOROURACIL
     Indication: RECTAL CANCER METASTATIC
     Dosage: 2000 MILLIGRAM/SQ. METER AS 24?HOUR INFUSIONS
     Route: 065
  3. FOLINIC ACID SOLUTION FOR INJECTION [Suspect]
     Active Substance: LEUCOVORIN
     Indication: RECTAL CANCER METASTATIC
     Dosage: 500 MILLIGRAM/SQ. METER AS 24?HOUR INFUSIONS
     Route: 065
  4. OXALIPLATIN. [Suspect]
     Active Substance: OXALIPLATIN
     Indication: RECTAL CANCER METASTATIC
     Dosage: 85 MILLIGRAM/SQ. METER EVERY SECOND WEEK
     Route: 065

REACTIONS (9)
  - Respiratory failure [Recovering/Resolving]
  - Pleural effusion [Recovering/Resolving]
  - Respiratory distress [Recovering/Resolving]
  - Dyspnoea [Recovering/Resolving]
  - Inflammatory marker increased [Recovering/Resolving]
  - Lung consolidation [Recovering/Resolving]
  - Condition aggravated [Recovering/Resolving]
  - Pyrexia [Recovering/Resolving]
  - Lung disorder [Recovering/Resolving]
